FAERS Safety Report 10280802 (Version 1)
Quarter: 2014Q3

REPORT INFORMATION
  Report Type: Spontaneous
  Country: DE (occurrence: None)
  Receive Date: 20140702
  Receipt Date: 20140702
  Transmission Date: 20150326
  Serious: Yes (Death)
  Sender: FDA-Public Use
  Company Number: IPC201406-000314

PATIENT
  Age: 54 Year
  Sex: Male

DRUGS (7)
  1. TRIAMTERENE. [Suspect]
     Active Substance: TRIAMTERENE
  2. ISOSORBIDE DINITRATE (ISOSORBIDE DINITRATE) (ISOSORBIDE DINITRATE) [Suspect]
     Active Substance: ISOSORBIDE DINITRATE
  3. THIOPENTAL [Suspect]
     Active Substance: THIOPENTAL
  4. THYROXINE [Suspect]
     Active Substance: LEVOTHYROXINE
  5. VALPROIC ACID (VALPROIC ACID) (VALPROIC ACID) [Suspect]
     Active Substance: VALPROIC ACID
     Indication: EPILEPSY
  6. HYDROCHLOROTHIAZIDE (HYDROCHLOROTHIAZIDE) (HYDROCHLOROTHIAZIDE) [Suspect]
     Active Substance: HYDROCHLOROTHIAZIDE
  7. ISOFLURANE. [Suspect]
     Active Substance: ISOFLURANE

REACTIONS (2)
  - Hepatic failure [None]
  - Hepatotoxicity [None]
